FAERS Safety Report 16120387 (Version 1)
Quarter: 2019Q1

REPORT INFORMATION
  Report Type: Spontaneous
  Country: FR (occurrence: FR)
  Receive Date: 20190326
  Receipt Date: 20190326
  Transmission Date: 20190418
  Serious: Yes (Hospitalization)
  Sender: FDA-Public Use
  Company Number: FR-LUNDBECK-DKLU2062500

PATIENT
  Age: 58 Year
  Sex: Female
  Weight: 65 kg

DRUGS (4)
  1. URBANYL [Suspect]
     Active Substance: CLOBAZAM
     Indication: PARTIAL SEIZURES
     Route: 048
     Dates: start: 20190111, end: 20190114
  2. AMOXICILLIN SODIUM/POTASSIUM CLAVULANATE [Suspect]
     Active Substance: AMOXICILLIN\CLAVULANATE POTASSIUM
     Indication: LUNG DISORDER
     Route: 041
     Dates: start: 20190101, end: 20190116
  3. DEPAKOTE [Concomitant]
     Active Substance: DIVALPROEX SODIUM
     Indication: PRODUCT USED FOR UNKNOWN INDICATION
     Route: 065
  4. LAMICTAL [Concomitant]
     Active Substance: LAMOTRIGINE
     Indication: PRODUCT USED FOR UNKNOWN INDICATION
     Route: 065

REACTIONS (2)
  - Lymphopenia [Recovered/Resolved]
  - Neutropenia [Recovered/Resolved]

NARRATIVE: CASE EVENT DATE: 20190117
